FAERS Safety Report 9866955 (Version 1)
Quarter: 2014Q1

REPORT INFORMATION
  Report Type: Spontaneous
  Country: US (occurrence: US)
  Receive Date: 20140204
  Receipt Date: 20140204
  Transmission Date: 20141002
  Serious: No
  Sender: FDA-Public Use
  Company Number: US-PFIZER INC-2014028715

PATIENT
  Age: 7 Decade
  Sex: Male

DRUGS (1)
  1. XELJANZ [Suspect]
     Dosage: UNK

REACTIONS (1)
  - Chest pain [Unknown]
